FAERS Safety Report 6253354-8 (Version None)
Quarter: 2009Q3

REPORT INFORMATION
  Report Type: 
  Country: None (occurrence: None)
  Receive Date: 20090701
  Receipt Date: 20090622
  Transmission Date: 20100115
  Serious: Yes (Hospitalization, Disabling, Other)
  Sender: FDA-Public Use
  Company Number: PHEH2009US03969

PATIENT
  Sex: Female
  Weight: 61.8 kg

DRUGS (16)
  1. CLOZAPINE [Suspect]
     Indication: BIPOLAR DISORDER
     Dosage: 500 MG, QHS
     Route: 048
     Dates: start: 20071126
  2. CLOZAPINE [Suspect]
     Indication: ANXIETY
  3. CYCLOBENZAPRINE [Concomitant]
     Dosage: 10 MG, TID
     Route: 048
  4. DOCUSATE SODIUM [Concomitant]
     Dosage: 100 MG, BID
     Route: 048
  5. VITAMIN TAB [Concomitant]
     Dosage: UNK
  6. LEVOXYL [Concomitant]
     Dosage: 200MCG MONDAY-SATURDAY, 300MCG ON SUNDAYS
     Route: 048
  7. LITHIUM CARBONATE [Concomitant]
     Dosage: 300 MG, 2 TABLETS TWICE DAILY
     Route: 048
  8. LORAZEPAM [Concomitant]
     Dosage: 0.5-1 TABLET BID AS NEEDED FOR ANXIETY
     Route: 048
  9. METFORMIN [Concomitant]
     Dosage: 500MG, 1 TAB AT BREAKFAST AND 2 TABS AT SUPPER
     Route: 048
  10. METOPROLOL TARTRATE [Concomitant]
     Dosage: 50 MG, BID
     Route: 048
  11. OMEPRAZOLE [Concomitant]
     Dosage: 20 MG, QD, BEFORE BREAKFAST
     Route: 048
  12. PHENOXYBENZAMINE [Concomitant]
     Dosage: 10 MG, QD
     Route: 048
  13. POLYETHYLENE GLYCOL 3350 [Concomitant]
     Dosage: 17 G DAILY
     Route: 048
  14. TRAZODONE HCL [Concomitant]
     Dosage: 100 MG, 4 TABLETS AS NEEDED
  15. TRILEPTAL [Concomitant]
     Dosage: 300MG, 2 TABLETS BID
     Route: 048
  16. ALPRAZOLAM [Concomitant]
     Dosage: 0.5 MG, TID AS NEEDED FOR ANXIETY

REACTIONS (9)
  - AGITATION [None]
  - ANXIETY [None]
  - BLOOD CATECHOLAMINES INCREASED [None]
  - EPINEPHRINE INCREASED [None]
  - HEART RATE INCREASED [None]
  - HYPERTENSION [None]
  - NERVOUSNESS [None]
  - PANIC REACTION [None]
  - PHAEOCHROMOCYTOMA [None]
